FAERS Safety Report 24003616 (Version 2)
Quarter: 2024Q3

REPORT INFORMATION
  Report Type: Report from Study
  Country: CA (occurrence: CA)
  Receive Date: 20240624
  Receipt Date: 20240925
  Transmission Date: 20241017
  Serious: Yes (Death, Other)
  Sender: ABBVIE
  Company Number: CA-ABBVIE-5804058

PATIENT
  Age: 81 Year
  Sex: Male

DRUGS (13)
  1. VENETOCLAX [Suspect]
     Active Substance: VENETOCLAX
     Indication: Acute myeloid leukaemia
     Route: 048
     Dates: start: 20231116, end: 20231116
  2. VENETOCLAX [Suspect]
     Active Substance: VENETOCLAX
     Indication: Acute myeloid leukaemia
     Dosage: DURATION TEXT: DAYS 3 TO 28
     Route: 048
     Dates: start: 20240514, end: 20240528
  3. VENETOCLAX [Suspect]
     Active Substance: VENETOCLAX
     Indication: Acute myeloid leukaemia
     Route: 048
     Dates: start: 20240103, end: 20240117
  4. VENETOCLAX [Suspect]
     Active Substance: VENETOCLAX
     Indication: Acute myeloid leukaemia
     Route: 048
     Dates: start: 20231115, end: 20231115
  5. VENETOCLAX [Suspect]
     Active Substance: VENETOCLAX
     Indication: Acute myeloid leukaemia
     Route: 048
     Dates: start: 20231117, end: 20231208
  6. COVID-19 vaccine [Concomitant]
     Indication: COVID-19 prophylaxis
     Dosage: FOURTH DOSE, ONE IN ONCE
     Route: 030
  7. COVID-19 vaccine [Concomitant]
     Indication: COVID-19 prophylaxis
     Dosage: SECOND DOSE, ONE IN ONCE
     Route: 030
  8. COVID-19 vaccine [Concomitant]
     Indication: COVID-19 prophylaxis
     Dosage: FIFTH DOSE, ONE IN ONCE
     Route: 030
  9. COVID-19 vaccine [Concomitant]
     Indication: COVID-19 prophylaxis
     Dosage: THIRD DOSE, ONE IN ONCE
     Route: 030
  10. COVID-19 vaccine [Concomitant]
     Indication: COVID-19 prophylaxis
     Dosage: FIRST DOSE, ONE IN ONCE
     Route: 030
  11. AZACITIDINE [Suspect]
     Active Substance: AZACITIDINE
     Indication: Product used for unknown indication
     Dosage: LAST ADMIN DATE: 2024
     Route: 065
     Dates: start: 20240103
  12. AZACITIDINE [Suspect]
     Active Substance: AZACITIDINE
     Indication: Product used for unknown indication
     Route: 065
     Dates: start: 20231115, end: 20231121
  13. AZACITIDINE [Suspect]
     Active Substance: AZACITIDINE
     Indication: Product used for unknown indication
     Route: 065
     Dates: start: 20240514, end: 20240520

REACTIONS (1)
  - Febrile neutropenia [Fatal]

NARRATIVE: CASE EVENT DATE: 20240528
